FAERS Safety Report 4555050-1 (Version None)
Quarter: 2004Q4

REPORT INFORMATION
  Report Type: 
  Country: None (occurrence: None)
  Receive Date: 20041217
  Receipt Date: 20040929
  Transmission Date: 20050328
  Serious: No
  Sender: FDA-Public Use
  Company Number: 2004-BP-04892BP

PATIENT
  Sex: Male

DRUGS (1)
  1. SPIRIVA HANDIHANDLER (TIOTROPIUM BROMIDE) [Suspect]
     Dosage: (18 MCG) IH
     Route: 055

REACTIONS (1)
  - DRUG INEFFECTIVE [None]
